FAERS Safety Report 9553724 (Version 1)
Quarter: 2013Q3

REPORT INFORMATION
  Report Type: Spontaneous
  Country: US (occurrence: None)
  Receive Date: 20130814
  Receipt Date: 20130814
  Transmission Date: 20140515
  Serious: Yes (Hospitalization)
  Sender: FDA-Public Use
  Company Number: 1206USA02817

PATIENT
  Sex: Male

DRUGS (1)
  1. PROSCAR [Suspect]
     Dosage: UNK, UNK, ORAL
     Route: 048

REACTIONS (4)
  - Sexual dysfunction [None]
  - Ejaculation disorder [None]
  - Erectile dysfunction [None]
  - Erectile dysfunction [None]
